FAERS Safety Report 5444732-5 (Version None)
Quarter: 2007Q3

REPORT INFORMATION
  Report Type: 
  Country: None (occurrence: None)
  Receive Date: 20070906
  Receipt Date: 20070226
  Transmission Date: 20080115
  Serious: No
  Sender: FDA-Public Use
  Company Number: A0640856A

PATIENT
  Sex: Female

DRUGS (3)
  1. REQUIP [Suspect]
     Indication: RESTLESS LEGS SYNDROME
     Route: 048
  2. NASAL SPRAY [Concomitant]
  3. PSEUDOEPHEDRINE HCL [Concomitant]

REACTIONS (2)
  - NASAL CONGESTION [None]
  - NASAL OEDEMA [None]
